FAERS Safety Report 14254736 (Version 1)
Quarter: 2017Q4

REPORT INFORMATION
  Report Type: Spontaneous
  Country: US (occurrence: US)
  Receive Date: 20171205
  Receipt Date: 20171205
  Transmission Date: 20180321
  Serious: Yes (Hospitalization)
  Sender: FDA-Public Use
  Company Number: None

PATIENT
  Sex: Female

DRUGS (8)
  1. IBRANCE [Suspect]
     Active Substance: PALBOCICLIB
     Indication: BREAST CANCER FEMALE
     Route: 048
     Dates: start: 20170629
  2. LEUCOVORIN. [Concomitant]
     Active Substance: LEUCOVORIN
  3. LETROZOLE. [Concomitant]
     Active Substance: LETROZOLE
  4. METHOTREXATE. [Concomitant]
     Active Substance: METHOTREXATE
  5. CENTRUM [Concomitant]
     Active Substance: VITAMINS
  6. LEVETIRACETAM. [Concomitant]
     Active Substance: LEVETIRACETAM
  7. BIOTIN [Concomitant]
     Active Substance: BIOTIN
  8. OSCAL [Concomitant]
     Active Substance: CALCIUM CARBONATE

REACTIONS (1)
  - Full blood count decreased [None]
